FAERS Safety Report 16473538 (Version 1)
Quarter: 2019Q2

REPORT INFORMATION
  Report Type: Spontaneous
  Country: US (occurrence: US)
  Receive Date: 20190625
  Receipt Date: 20190625
  Transmission Date: 20190711
  Serious: No
  Sender: FDA-Public Use
  Company Number: US-ASTRAZENECA-2019SE89990

PATIENT
  Age: 67 Year
  Sex: Female

DRUGS (1)
  1. ZOMIG [Suspect]
     Active Substance: ZOLMITRIPTAN
     Indication: MIGRAINE
     Dosage: USE 1 SPRAY IN 1 NOSTRIL ONCE AT ONSET OF MIGRAINE. MAY REPEAT ONCE AFTER 2 HOURS INTO ALTERNATE NOS
     Route: 045

REACTIONS (2)
  - Arthritis [Unknown]
  - Pain in extremity [Unknown]
